FAERS Safety Report 9857525 (Version 1)
Quarter: 2014Q1

REPORT INFORMATION
  Report Type: Report from Study
  Country: IN (occurrence: IN)
  Receive Date: 20140131
  Receipt Date: 20140131
  Transmission Date: 20141002
  Serious: Yes (Death, Hospitalization)
  Sender: FDA-Public Use
  Company Number: PHHY2014IN010030

PATIENT
  Age: 58 Year
  Sex: Female

DRUGS (1)
  1. AFINITOR [Suspect]
     Indication: BREAST CANCER
     Dosage: 10 MG, QD
     Route: 048
     Dates: start: 20131124, end: 20140113

REACTIONS (4)
  - Cardiac arrest [Fatal]
  - Jaundice [Unknown]
  - Asthenia [Unknown]
  - Local swelling [Unknown]
